FAERS Safety Report 10510021 (Version 1)
Quarter: 2014Q4

REPORT INFORMATION
  Report Type: Spontaneous
  Country: IT (occurrence: IT)
  Receive Date: 20141010
  Receipt Date: 20141010
  Transmission Date: 20150528
  Serious: Yes (Hospitalization, Other)
  Sender: FDA-Public Use
  Company Number: IT-ASTRAZENECA-2014SE74530

PATIENT
  Age: 30552 Day
  Sex: Male
  Weight: 80 kg

DRUGS (3)
  1. MIRTAZAPINE. [Concomitant]
     Active Substance: MIRTAZAPINE
     Route: 065
  2. SEROQUEL [Suspect]
     Active Substance: QUETIAPINE FUMARATE
     Indication: SCHIZOPHRENIA
     Route: 048
     Dates: start: 20140609, end: 20140623
  3. SERENASE [Suspect]
     Active Substance: HALOPERIDOL
     Indication: SCHIZOPHRENIA
     Route: 048
     Dates: end: 20140609

REACTIONS (8)
  - Musculoskeletal stiffness [Unknown]
  - Rhabdomyolysis [Unknown]
  - C-reactive protein increased [Unknown]
  - Gait disturbance [Unknown]
  - Haematocrit decreased [Unknown]
  - Hallucination, auditory [Unknown]
  - Insomnia [Unknown]
  - Aspartate aminotransferase increased [Unknown]

NARRATIVE: CASE EVENT DATE: 20140623
